FAERS Safety Report 5171006-2 (Version None)
Quarter: 2006Q4

REPORT INFORMATION
  Report Type: 
  Country: None (occurrence: None)
  Receive Date: 20061213
  Receipt Date: 20061020
  Transmission Date: 20070319
  Serious: Yes (Disabling)
  Sender: FDA-Public Use
  Company Number: US-ALLERGAN-0606575US

PATIENT
  Sex: Male
  Weight: 86.167 kg

DRUGS (1)
  1. BOTOX [Suspect]
     Indication: DYSTONIA
     Dosage: 100 UNITS, SINGLE
     Route: 030
     Dates: start: 20060209

REACTIONS (4)
  - DRUG INEFFECTIVE [None]
  - MUSCULAR WEAKNESS [None]
  - PARALYSIS [None]
  - TREMOR [None]
